FAERS Safety Report 7069526-9 (Version None)
Quarter: 2010Q4

REPORT INFORMATION
  Report Type: 
  Country: None (occurrence: None)
  Receive Date: 20101028
  Receipt Date: 20100315
  Transmission Date: 20110411
  Serious: No
  Sender: FDA-Public Use
  Company Number: US-WYE-H14127710

PATIENT
  Sex: Female

DRUGS (8)
  1. EFFEXOR XR [Suspect]
     Indication: FIBROMYALGIA
     Route: 048
     Dates: start: 20100215, end: 20100308
  2. LYRICA [Concomitant]
  3. XANAX [Concomitant]
  4. CYMBALTA [Concomitant]
  5. SYNTHROID [Concomitant]
  6. LIDOCAINE HYDROCHLORIDE IN PLASTIC CONTAINER [Concomitant]
  7. PROTONIX [Suspect]
     Indication: GASTROOESOPHAGEAL REFLUX DISEASE
     Route: 048
  8. MOBIC [Concomitant]

REACTIONS (2)
  - ABDOMINAL PAIN UPPER [None]
  - DRUG INEFFECTIVE [None]
